FAERS Safety Report 18459075 (Version 1)
Quarter: 2020Q4

REPORT INFORMATION
  Report Type: Spontaneous
  Country: US (occurrence: US)
  Receive Date: 20201103
  Receipt Date: 20201103
  Transmission Date: 20210114
  Serious: Yes (Other)
  Sender: FDA-Public Use
  Company Number: US-ASTRAZENECA-2020SF43186

PATIENT
  Age: 856 Month
  Sex: Female
  Weight: 56.7 kg

DRUGS (1)
  1. BYDUREON BCISE [Suspect]
     Active Substance: EXENATIDE
     Indication: TYPE 2 DIABETES MELLITUS
     Route: 058
     Dates: start: 202003

REACTIONS (6)
  - Infection [Recovered/Resolved]
  - Drug delivery system malfunction [Unknown]
  - Femur fracture [Unknown]
  - Blood potassium decreased [Recovered/Resolved]
  - Fall [Unknown]
  - Incorrect dose administered by device [Unknown]

NARRATIVE: CASE EVENT DATE: 202009
